FAERS Safety Report 8162838-7 (Version None)
Quarter: 2012Q1

REPORT INFORMATION
  Report Type: 
  Country: None (occurrence: None)
  Receive Date: 20120224
  Receipt Date: 20120215
  Transmission Date: 20120608
  Serious: Yes (Hospitalization)
  Sender: FDA-Public Use
  Company Number: DE-MPIJNJ-2012-00479

PATIENT

DRUGS (10)
  1. RITUXIMAB [Suspect]
     Dosage: UNK
     Route: 065
     Dates: start: 20120206, end: 20120206
  2. PREDNISONE [Suspect]
     Dosage: UNK
     Route: 065
     Dates: start: 20120206, end: 20120210
  3. DOXORUBICIN HCL [Suspect]
     Dosage: UNK
     Route: 065
     Dates: start: 20120206, end: 20120206
  4. CYCLOPHOSPHAMIDE [Suspect]
     Dosage: UNK
     Route: 065
     Dates: start: 20120206, end: 20120206
  5. VELCADE [Suspect]
     Dosage: UNK
     Route: 065
     Dates: start: 20120106, end: 20120106
  6. PREDNISONE [Suspect]
     Indication: DIFFUSE LARGE B-CELL LYMPHOMA
     Dosage: UNK
     Dates: start: 20111230, end: 20111230
  7. CYCLOPHOSPHAMIDE [Suspect]
     Indication: DIFFUSE LARGE B-CELL LYMPHOMA
     Dosage: UNK
     Route: 065
     Dates: start: 20111230, end: 20111230
  8. VELCADE [Suspect]
     Indication: DIFFUSE LARGE B-CELL LYMPHOMA
     Dosage: UNK
     Route: 065
     Dates: start: 20111230, end: 20111230
  9. DOXORUBICIN HCL [Suspect]
     Indication: DIFFUSE LARGE B-CELL LYMPHOMA
     Dosage: UNK
     Route: 065
     Dates: start: 20111230, end: 20111230
  10. RITUXIMAB [Suspect]
     Indication: DIFFUSE LARGE B-CELL LYMPHOMA
     Dosage: UNK
     Route: 065
     Dates: start: 20111230, end: 20111230

REACTIONS (5)
  - DYSPNOEA [None]
  - DIZZINESS [None]
  - ARRHYTHMIA [None]
  - VERTIGO [None]
  - NEUROPATHY PERIPHERAL [None]
